FAERS Safety Report 6066816-3 (Version None)
Quarter: 2009Q1

REPORT INFORMATION
  Report Type: 
  Country: None (occurrence: None)
  Receive Date: 20090205
  Receipt Date: 20090128
  Transmission Date: 20090719
  Serious: Yes (Hospitalization)
  Sender: FDA-Public Use
  Company Number: FR-JNJFOC-20090106703

PATIENT
  Sex: Male

DRUGS (13)
  1. DURAGESIC-100 [Suspect]
     Indication: DRUG USE FOR UNKNOWN INDICATION
     Route: 062
  2. MINISINTROM [Suspect]
     Indication: DRUG USE FOR UNKNOWN INDICATION
     Route: 048
  3. SEROPRAM [Suspect]
     Indication: DEPRESSION
     Route: 048
  4. TRANXENE [Concomitant]
  5. LYRICA [Concomitant]
  6. LASILIX [Concomitant]
  7. HEMIGOXINE [Concomitant]
  8. ATENOLOL [Concomitant]
  9. FURADANTIN [Concomitant]
  10. NORMACOL [Concomitant]
  11. NULYTELY [Concomitant]
  12. DEXERYL [Concomitant]
  13. PROCTOLOG [Concomitant]

REACTIONS (3)
  - HAEMATURIA [None]
  - INTERNATIONAL NORMALISED RATIO INCREASED [None]
  - URINARY RETENTION [None]
